FAERS Safety Report 17298741 (Version 1)
Quarter: 2020Q1

REPORT INFORMATION
  Report Type: Spontaneous
  Country: US (occurrence: US)
  Receive Date: 20200122
  Receipt Date: 20200122
  Transmission Date: 20200409
  Serious: Yes (Other)
  Sender: FDA-Public Use
  Company Number: US-TEVA-2020-US-1171581

PATIENT
  Age: 25 Year
  Sex: Female
  Weight: 80 kg

DRUGS (11)
  1. FOLIC ACID. [Suspect]
     Active Substance: FOLIC ACID
     Route: 065
  2. FENTANYL. [Suspect]
     Active Substance: FENTANYL
     Indication: EPIDURAL ANAESTHESIA
     Dosage: THE EPIDURAL INFUSION OF 0.1% ROPIVACAINE WITH FENTANYL 2 MICROG/ML WAS STARTED AT 4:32, WITH A B...
     Route: 008
  3. LACTATED RINGERS SOLUTION [Suspect]
     Active Substance: CALCIUM CHLORIDE\POTASSIUM CHLORIDE\SODIUM CHLORIDE\SODIUM LACTATE
     Dosage: SOLUTION
     Route: 065
  4. EPINEPHRINE. [Suspect]
     Active Substance: EPINEPHRINE
     Dosage: TEST DOSE OF 3 ML OF EPINEPHRINE WITH 1.5% LIDOCAINE
     Route: 008
  5. LEVETIRACETAM. [Suspect]
     Active Substance: LEVETIRACETAM
     Route: 065
  6. ROPIVACAINE. [Suspect]
     Active Substance: ROPIVACAINE HYDROCHLORIDE
     Indication: EPIDURAL ANAESTHESIA
     Dosage: 3 ML OF 0.1% ROPIVACAINE WITH FENTANYL 2 MICROG/ML; INITIATED AT 4:22 PM
     Route: 037
  7. FENTANYL. [Suspect]
     Active Substance: FENTANYL
     Indication: EPIDURAL ANAESTHESIA
     Dosage: 3 ML OF 0.1% ROPIVACAINE WITH FENTANYL 2 MICROG/ML; INITIATED AT 4:22 PM
     Route: 037
  8. FENTANYL. [Suspect]
     Active Substance: FENTANYL
     Indication: EPIDURAL ANAESTHESIA
     Route: 008
  9. LIDOCAINE. [Suspect]
     Active Substance: LIDOCAINE
     Indication: EPIDURAL ANAESTHESIA
     Dosage: TEST DOSE OF 3 ML OF 1.5% LIDOCAINE WITH EPINEPHRINE (1:200,000)
     Route: 008
  10. ROPIVACAINE. [Suspect]
     Active Substance: ROPIVACAINE HYDROCHLORIDE
     Indication: EPIDURAL ANAESTHESIA
     Dosage: THE EPIDURAL INFUSION OF 0.1% ROPIVACAINE WITH FENTANYL 2 MICROG/ML WAS STARTED AT 4:32, WITH A B...
     Route: 008
  11. BUPIVACAINE. [Suspect]
     Active Substance: BUPIVACAINE
     Indication: EPIDURAL ANAESTHESIA
     Route: 008

REACTIONS (4)
  - Live birth [Unknown]
  - Heart rate increased [Recovered/Resolved]
  - Maternal exposure during pregnancy [Unknown]
  - Blood pressure fluctuation [Unknown]
